FAERS Safety Report 24157989 (Version 1)
Quarter: 2024Q3

REPORT INFORMATION
  Report Type: Spontaneous
  Country: US (occurrence: None)
  Receive Date: 20240731
  Receipt Date: 20240731
  Transmission Date: 20241017
  Serious: Yes (Hospitalization)
  Sender: Public
  Company Number: None

PATIENT
  Sex: Male

DRUGS (1)
  1. VUMERITY [Suspect]
     Active Substance: DIROXIMEL FUMARATE
     Indication: Multiple sclerosis
     Dosage: 462MG TWICE DAILY BY MOUTH
     Route: 048
     Dates: start: 202106

REACTIONS (5)
  - Monoplegia [None]
  - Lethargy [None]
  - Fatigue [None]
  - Asthenia [None]
  - Cardiac disorder [None]
